FAERS Safety Report 6237139-4 (Version None)
Quarter: 2009Q2

REPORT INFORMATION
  Report Type: 
  Country: None (occurrence: None)
  Receive Date: 20090619
  Receipt Date: 20090423
  Transmission Date: 20091009
  Serious: No
  Sender: FDA-Public Use
  Company Number: US-ASTRAZENECA-2009UW10240

PATIENT
  Age: 75 Year
  Sex: Female
  Weight: 72.6 kg

DRUGS (7)
  1. SYMBICORT [Suspect]
     Indication: CHRONIC OBSTRUCTIVE PULMONARY DISEASE
     Route: 055
  2. DILTIAZEM [Concomitant]
     Indication: BLOOD PRESSURE
  3. CRESTOR [Concomitant]
  4. SPIRIVA [Concomitant]
  5. NEXIUM [Concomitant]
  6. SINGULAIR [Concomitant]
  7. OXYBUTYNIN [Concomitant]

REACTIONS (2)
  - ALOPECIA [None]
  - SINUSITIS [None]
